FAERS Safety Report 24451419 (Version 1)
Quarter: 2024Q4

REPORT INFORMATION
  Report Type: Spontaneous
  Country: US (occurrence: US)
  Receive Date: 20241017
  Receipt Date: 20241017
  Transmission Date: 20250115
  Serious: Yes (Other)
  Sender: JOHNSON AND JOHNSON
  Company Number: US-JNJFOC-20241041545

PATIENT
  Age: 21 Year
  Sex: Female

DRUGS (5)
  1. REMICADE [Suspect]
     Active Substance: INFLIXIMAB
     Indication: Crohn^s disease
     Route: 041
  2. REMICADE [Suspect]
     Active Substance: INFLIXIMAB
     Indication: Colitis
  3. METHOTREXATE [Concomitant]
     Active Substance: METHOTREXATE
  4. FOLATE SODIUM [Concomitant]
     Active Substance: FOLATE SODIUM
  5. MINOCYCLINE [Concomitant]
     Active Substance: MINOCYCLINE HYDROCHLORIDE

REACTIONS (2)
  - Cutaneous vasculitis [Unknown]
  - Clostridium test positive [Not Recovered/Not Resolved]
